FAERS Safety Report 13267584 (Version 11)
Quarter: 2021Q3

REPORT INFORMATION
  Report Type: Spontaneous
  Country: US (occurrence: US)
  Receive Date: 20170224
  Receipt Date: 20210920
  Transmission Date: 20211014
  Serious: No
  Sender: FDA-Public Use
  Company Number: US-PFIZER INC-2017077524

PATIENT
  Age: 69 Year
  Sex: Female

DRUGS (7)
  1. LYRICA [Suspect]
     Active Substance: PREGABALIN
     Indication: LUMBAR RADICULOPATHY
     Dosage: 75 MG, UNK
  2. LYRICA [Suspect]
     Active Substance: PREGABALIN
     Indication: FIBROMYALGIA
     Dosage: 300 MG, DAILY  (75 MG IN THE AM, 75 MG IN THE AFTERNOON , AND 150 MG AT BEDTIME)
  3. CELEBREX [Concomitant]
     Active Substance: CELECOXIB
     Dosage: 200 MG, 2X/DAY
  4. LYRICA [Suspect]
     Active Substance: PREGABALIN
     Indication: HYPOTHYROIDISM
     Dosage: 50 MG, 2X/DAY (TAKE 1 CAPSULE BY MOUTH TWO TIMES A DAY)
     Route: 048
  5. PREMARIN [Concomitant]
     Active Substance: ESTROGENS, CONJUGATED
     Dosage: UNK
  6. DETROL LA [Concomitant]
     Active Substance: TOLTERODINE TARTRATE
     Dosage: 4 MG, DAILY
  7. LYRICA [Suspect]
     Active Substance: PREGABALIN
     Indication: NEUROPATHY PERIPHERAL
     Dosage: 75 MG, 4X/DAY(4 TIMES A DAY FOR 360 DOSES FOR 90 DAYS)
     Route: 048

REACTIONS (3)
  - Gastric pH decreased [Unknown]
  - Pain in extremity [Unknown]
  - Fibromyalgia [Not Recovered/Not Resolved]
